FAERS Safety Report 23103840 (Version 2)
Quarter: 2023Q4

REPORT INFORMATION
  Report Type: Spontaneous
  Country: JP (occurrence: JP)
  Receive Date: 20231025
  Receipt Date: 20231108
  Transmission Date: 20240109
  Serious: Yes (Hospitalization)
  Sender: FDA-Public Use
  Company Number: JP-BAYER-2023A150542

PATIENT
  Age: 49 Year
  Sex: Female

DRUGS (1)
  1. MIRENA [Suspect]
     Active Substance: LEVONORGESTREL
     Indication: Dysmenorrhoea
     Dosage: 20?G/DAY
     Route: 015
     Dates: start: 20221014

REACTIONS (1)
  - Breast cancer female [Recovered/Resolved]

NARRATIVE: CASE EVENT DATE: 20230705
